FAERS Safety Report 7359759-6 (Version None)
Quarter: 2011Q1

REPORT INFORMATION
  Report Type: 
  Country: None (occurrence: None)
  Receive Date: 20110307
  Receipt Date: 20090317
  Transmission Date: 20110831
  Serious: Yes (Disabling, Other)
  Sender: FDA-Public Use
  Company Number: UK-2009-00088

PATIENT
  Age: 72 Year
  Sex: Male

DRUGS (4)
  1. ASPIRIN [Concomitant]
  2. SIMVASTATIN [Suspect]
     Indication: HYPERCHOLESTEROLAEMIA
     Dosage: 40 MG (40 MG, 1 IN 1 D), ORAL
     Route: 048
     Dates: end: 20090214
  3. AMLODIPINE BESYLATE [Concomitant]
  4. ATENOLOL [Concomitant]

REACTIONS (1)
  - INTERSTITIAL LUNG DISEASE [None]
